FAERS Safety Report 11749811 (Version 1)
Quarter: 2015Q4

REPORT INFORMATION
  Report Type: Spontaneous
  Country: US (occurrence: US)
  Receive Date: 20151118
  Receipt Date: 20151118
  Transmission Date: 20160304
  Serious: Yes (Hospitalization, Other)
  Sender: FDA-Public Use
  Company Number: US-AMGEN-USASP2015120231

PATIENT
  Age: 72 Year
  Sex: Male

DRUGS (5)
  1. NASONEX [Concomitant]
     Active Substance: MOMETASONE FUROATE
  2. VYTORIN [Concomitant]
     Active Substance: EZETIMIBE\SIMVASTATIN
  3. PROLIA [Suspect]
     Active Substance: DENOSUMAB
     Indication: OSTEOPOROSIS
     Dosage: UNK
     Route: 065
     Dates: start: 201402
  4. BABY ASPIRIN [Concomitant]
     Active Substance: ASPIRIN
  5. VITAMINS                           /00067501/ [Concomitant]
     Active Substance: VITAMINS

REACTIONS (2)
  - Abscess jaw [Unknown]
  - Hernia repair [Unknown]

NARRATIVE: CASE EVENT DATE: 201511
